FAERS Safety Report 14334370 (Version 2)
Quarter: 2018Q1

REPORT INFORMATION
  Report Type: Report from Study
  Country: US (occurrence: US)
  Receive Date: 20171228
  Receipt Date: 20180109
  Transmission Date: 20180509
  Serious: Yes (Hospitalization)
  Sender: FDA-Public Use
  Company Number: US-ACTELION-A-US2017-150774

PATIENT
  Age: 11 Month
  Sex: Male

DRUGS (33)
  1. FLOVENT [Concomitant]
     Active Substance: FLUTICASONE PROPIONATE
     Dosage: 2 PUFFS, BID
     Route: 045
  2. D5NM [Concomitant]
     Dosage: 30 ML/HR, UNK
     Route: 042
  3. MYCOSTATIN BABY [Concomitant]
     Dosage: UNK, QID
     Route: 061
  4. ADCIRCA [Concomitant]
     Active Substance: TADALAFIL
  5. VIAGRA [Concomitant]
     Active Substance: SILDENAFIL CITRATE
     Dosage: 6 MG, TID
     Route: 048
     Dates: end: 20170515
  6. POTASSIUM CHLORIDE. [Concomitant]
     Active Substance: POTASSIUM CHLORIDE
     Dosage: 6 MEQ, BID
     Route: 048
  7. POTASSIUM CHLORIDE. [Concomitant]
     Active Substance: POTASSIUM CHLORIDE
     Dosage: 6.533 MEQ, UNK
     Route: 051
  8. ZANTAC [Concomitant]
     Active Substance: RANITIDINE HYDROCHLORIDE
     Dosage: 12 MG, TID
     Route: 048
  9. KLONOPIN [Concomitant]
     Active Substance: CLONAZEPAM
     Dosage: 0.08 MG, TID
     Route: 048
  10. FLOVENT [Concomitant]
     Active Substance: FLUTICASONE PROPIONATE
     Dosage: 110 MCG, UNK
     Route: 048
  11. ROCEPHIN [Concomitant]
     Active Substance: CEFTRIAXONE SODIUM
     Dosage: 50 MG/KG, QD
     Route: 042
  12. ZYRTEC [Concomitant]
     Active Substance: CETIRIZINE HYDROCHLORIDE
     Dosage: 2.5 MG, Q12HRS
  13. POLYVISOL [Concomitant]
  14. XOPENEX [Concomitant]
     Active Substance: LEVALBUTEROL HYDROCHLORIDE
     Dosage: 2 PUFFS, BID
     Route: 045
     Dates: end: 20170515
  15. SOLU-CORTEF [Concomitant]
     Active Substance: HYDROCORTISONE SODIUM SUCCINATE
     Dosage: 25 MG, X1
     Dates: end: 20170515
  16. TRACLEER [Suspect]
     Active Substance: BOSENTAN
     Indication: PULMONARY ARTERIAL HYPERTENSION
     Dosage: APPROX 6 MG, BID
     Route: 048
     Dates: start: 2016
  17. PREDNISOLONE. [Concomitant]
     Active Substance: PREDNISOLONE
     Dosage: 6 MG, BID
     Route: 048
  18. DIURIL [Concomitant]
     Active Substance: CHLOROTHIAZIDE
     Dosage: 70 MG, Q12HRS
     Route: 042
  19. PERIACTIN [Concomitant]
     Active Substance: CYPROHEPTADINE HYDROCHLORIDE
  20. TRACLEER [Suspect]
     Active Substance: BOSENTAN
     Dosage: 31.25 MG, BID
     Route: 048
     Dates: start: 20170216
  21. TRACLEER [Suspect]
     Active Substance: BOSENTAN
     Dosage: 15.625 MG, BID
     Route: 048
     Dates: start: 20170517
  22. BACTROBAN [Concomitant]
     Active Substance: MUPIROCIN\MUPIROCIN CALCIUM
     Dosage: UNK, TID
     Route: 061
  23. SPIRONOLACTONE. [Concomitant]
     Active Substance: SPIRONOLACTONE
     Dosage: 5 MG, Q12HRS
     Route: 048
  24. TRACLEER [Suspect]
     Active Substance: BOSENTAN
     Dosage: APPROX 12 MG, BID
     Route: 048
     Dates: start: 2016
  25. VIAGRA [Concomitant]
     Active Substance: SILDENAFIL CITRATE
     Dosage: 8 MG, UNK
     Route: 048
  26. SODIUM CHLORIDE. [Concomitant]
     Active Substance: SODIUM CHLORIDE
     Dosage: 7.5 MEQ, TID
     Dates: end: 20170517
  27. ERYTHROMYCIN. [Concomitant]
     Active Substance: ERYTHROMYCIN
  28. LASIX [Concomitant]
     Active Substance: FUROSEMIDE
     Dosage: 13 MG, Q12HRS
  29. PRILOSEC [Concomitant]
     Active Substance: OMEPRAZOLE MAGNESIUM
     Dosage: 10 MG, BID
  30. TYLENOL [Concomitant]
     Active Substance: ACETAMINOPHEN
  31. PRELONE [Concomitant]
     Active Substance: PREDNISOLONE
  32. MULTIVITAMIN AND MINERAL SUPPLEMENT [Concomitant]
     Active Substance: MINERALS\VITAMINS
     Dosage: 1 ML, QD
     Route: 048
  33. SOLU-MEDROL [Concomitant]
     Active Substance: METHYLPREDNISOLONE SODIUM SUCCINATE
     Dosage: 7.6 MG, UNK

REACTIONS (11)
  - Viral infection [Recovered/Resolved]
  - Pyrexia [Recovered/Resolved]
  - Bronchiolitis [Unknown]
  - Acute respiratory failure [Recovered/Resolved]
  - Corona virus infection [Recovered/Resolved]
  - Pneumonia [Unknown]
  - Pneumonia aspiration [Unknown]
  - Influenza [Recovered/Resolved]
  - Unevaluable event [Recovered/Resolved]
  - Dyspnoea [Unknown]
  - Respiratory distress [Recovered/Resolved]

NARRATIVE: CASE EVENT DATE: 20170303
